FAERS Safety Report 5123954-7 (Version None)
Quarter: 2006Q3

REPORT INFORMATION
  Report Type: 
  Country: None (occurrence: None)
  Receive Date: 20060807
  Receipt Date: 20060414
  Transmission Date: 20061208
  Serious: Yes (Disabling, Other)
  Sender: FDA-Public Use
  Company Number: WAES 0604USA02806

PATIENT
  Age: 73 Year
  Sex: Female
  Weight: 46.7205 kg

DRUGS (6)
  1. FOSAMAX PLUS D [Suspect]
     Indication: OSTEOPOROSIS
     Dosage: 70 MG/2800 IU/WKY/PO
     Route: 048
  2. PROVERA [Concomitant]
  3. CALCIUM [Concomitant]
  4. ESTRADIOL INJ [Concomitant]
  5. VERAPAMIL [Concomitant]
  6. VITAMINS [Concomitant]

REACTIONS (1)
  - PAIN IN JAW [None]
